FAERS Safety Report 16538463 (Version 1)
Quarter: 2019Q3

REPORT INFORMATION
  Report Type: Spontaneous
  Country: US (occurrence: US)
  Receive Date: 20190523
  Receipt Date: 20190523
  Transmission Date: 20191004
  Serious: Yes (Hospitalization)
  Sender: FDA-Public Use
  Company Number: None

PATIENT
  Age: 8 Year
  Sex: Male
  Weight: 19.1 kg

DRUGS (3)
  1. DACTINOMYCIN [Suspect]
     Active Substance: DACTINOMYCIN
     Dates: end: 20190416
  2. CYCLOPHOSPHAMIDE. [Suspect]
     Active Substance: CYCLOPHOSPHAMIDE
     Dates: end: 20190416
  3. VINCRISTINE [Suspect]
     Active Substance: VINCRISTINE
     Dosage: PATIENT SCHEDULE TO RECEIVE VINCRISTINE ON 5/6/2019, CHEMO HELD SECONDARY TO HOSPITALIZATION; ADMINISTERED ON 5/15/2019
     Dates: end: 20190501

REACTIONS (3)
  - Gastrointestinal hypomotility [None]
  - Narcotic bowel syndrome [None]
  - Pyrexia [None]

NARRATIVE: CASE EVENT DATE: 20190506
